FAERS Safety Report 8814213 (Version 3)
Quarter: 2013Q1

REPORT INFORMATION
  Report Type: Spontaneous
  Country: MY (occurrence: None)
  Receive Date: 20120925
  Receipt Date: 20121022
  Transmission Date: 20140127
  Serious: Yes (Other)
  Sender: FDA-Public Use
  Company Number: MY-1194184

PATIENT
  Age: 1 Month
  Sex: Male
  Weight: 2.3 kg

DRUGS (2)
  1. CYCLOMYDRIL [Suspect]
     Indication: RETINOPATHY OF PREMATURITY
     Route: 047
     Dates: start: 20110815, end: 20110815
  2. ALCAINE [Suspect]
     Indication: RETINOPATHY OF PREMATURITY
     Route: 047
     Dates: start: 20110815, end: 20110815

REACTIONS (1)
  - Apnoea [None]
